FAERS Safety Report 4882248-5 (Version None)
Quarter: 2006Q1

REPORT INFORMATION
  Report Type: 
  Country: None (occurrence: None)
  Receive Date: 20060117
  Receipt Date: 20060106
  Transmission Date: 20060701
  Serious: Yes (Hospitalization)
  Sender: FDA-Public Use
  Company Number: FR-AVENTIS-200610047FR

PATIENT
  Age: 15 Year
  Sex: Male
  Weight: 60 kg

DRUGS (14)
  1. PYOSTACINE [Suspect]
     Indication: BACTERIAL INFECTION
     Route: 048
     Dates: start: 20051004, end: 20051015
  2. PYOSTACINE [Suspect]
     Indication: SINUSITIS
     Route: 048
     Dates: start: 20051004, end: 20051015
  3. CLAFORAN [Suspect]
     Indication: SINUSITIS
     Route: 042
     Dates: start: 20051015, end: 20051107
  4. CLAFORAN [Suspect]
     Indication: BRAIN ABSCESS
     Route: 042
     Dates: start: 20051015, end: 20051107
  5. CLAFORAN [Suspect]
     Indication: MENINGITIS
     Route: 042
     Dates: start: 20051015, end: 20051107
  6. FLAGYL [Suspect]
     Indication: SINUSITIS
     Route: 048
     Dates: start: 20051015, end: 20051107
  7. FLAGYL [Suspect]
     Indication: BRAIN ABSCESS
     Route: 048
     Dates: start: 20051015, end: 20051107
  8. FLAGYL [Suspect]
     Indication: MENINGITIS
     Route: 048
     Dates: start: 20051015, end: 20051107
  9. FOSFOCINE [Suspect]
     Indication: SINUSITIS
     Route: 042
     Dates: start: 20051015, end: 20051108
  10. FOSFOCINE [Suspect]
     Dates: start: 20051109
  11. FOSFOCINE [Suspect]
     Indication: BRAIN ABSCESS
     Route: 042
     Dates: start: 20051015, end: 20051108
  12. FOSFOCINE [Suspect]
     Dates: start: 20051109
  13. FOSFOCINE [Suspect]
     Indication: MENINGITIS
     Route: 042
     Dates: start: 20051015, end: 20051108
  14. FOSFOCINE [Suspect]
     Dates: start: 20051109

REACTIONS (3)
  - AGRANULOCYTOSIS [None]
  - ALANINE AMINOTRANSFERASE INCREASED [None]
  - HEPATOCELLULAR DAMAGE [None]
